FAERS Safety Report 25543314 (Version 1)
Quarter: 2025Q3

REPORT INFORMATION
  Report Type: Report from Study
  Country: US (occurrence: US)
  Receive Date: 20250711
  Receipt Date: 20250711
  Transmission Date: 20251021
  Serious: Yes (Hospitalization)
  Sender: UNITED THERAPEUTICS
  Company Number: US-UNITED THERAPEUTICS-UNT-2025-022690

PATIENT
  Sex: Female
  Weight: 18.3 kg

DRUGS (35)
  1. UNITUXIN [Suspect]
     Active Substance: DINUTUXIMAB
     Indication: Neuroblastoma
     Route: 041
  2. UNITUXIN [Suspect]
     Active Substance: DINUTUXIMAB
     Route: 041
  3. UNITUXIN [Suspect]
     Active Substance: DINUTUXIMAB
     Route: 041
  4. UNITUXIN [Suspect]
     Active Substance: DINUTUXIMAB
     Route: 041
  5. UNITUXIN [Suspect]
     Active Substance: DINUTUXIMAB
     Route: 041
  6. UNITUXIN [Suspect]
     Active Substance: DINUTUXIMAB
     Route: 041
  7. UNITUXIN [Suspect]
     Active Substance: DINUTUXIMAB
     Route: 041
  8. UNITUXIN [Suspect]
     Active Substance: DINUTUXIMAB
     Route: 041
  9. UNITUXIN [Suspect]
     Active Substance: DINUTUXIMAB
     Route: 041
  10. UNITUXIN [Suspect]
     Active Substance: DINUTUXIMAB
     Route: 041
  11. UNITUXIN [Suspect]
     Active Substance: DINUTUXIMAB
     Route: 041
  12. ACCUTANE [Suspect]
     Active Substance: ISOTRETINOIN
     Indication: Neuroblastoma
  13. ACCUTANE [Suspect]
     Active Substance: ISOTRETINOIN
  14. ACCUTANE [Suspect]
     Active Substance: ISOTRETINOIN
  15. ACCUTANE [Suspect]
     Active Substance: ISOTRETINOIN
  16. ACCUTANE [Suspect]
     Active Substance: ISOTRETINOIN
  17. ACCUTANE [Suspect]
     Active Substance: ISOTRETINOIN
  18. ACCUTANE [Suspect]
     Active Substance: ISOTRETINOIN
  19. ACCUTANE [Suspect]
     Active Substance: ISOTRETINOIN
  20. ACCUTANE [Suspect]
     Active Substance: ISOTRETINOIN
  21. ACCUTANE [Suspect]
     Active Substance: ISOTRETINOIN
  22. ACCUTANE [Suspect]
     Active Substance: ISOTRETINOIN
  23. LEUKINE [Suspect]
     Active Substance: SARGRAMOSTIM
     Indication: Neuroblastoma
  24. LEUKINE [Suspect]
     Active Substance: SARGRAMOSTIM
  25. LEUKINE [Suspect]
     Active Substance: SARGRAMOSTIM
  26. LEUKINE [Suspect]
     Active Substance: SARGRAMOSTIM
  27. LEUKINE [Suspect]
     Active Substance: SARGRAMOSTIM
  28. LEUKINE [Suspect]
     Active Substance: SARGRAMOSTIM
  29. LEUKINE [Suspect]
     Active Substance: SARGRAMOSTIM
  30. LEUKINE [Suspect]
     Active Substance: SARGRAMOSTIM
  31. LEUKINE [Suspect]
     Active Substance: SARGRAMOSTIM
  32. LEUKINE [Suspect]
     Active Substance: SARGRAMOSTIM
  33. LEUKINE [Suspect]
     Active Substance: SARGRAMOSTIM
  34. METHYLPREDNISOLONE [Suspect]
     Active Substance: METHYLPREDNISOLONE
     Indication: Product used for unknown indication
  35. UNSPECIFIED INGREDIENT [Suspect]
     Active Substance: UNSPECIFIED INGREDIENT
     Indication: Product used for unknown indication

REACTIONS (1)
  - Pneumatosis intestinalis [Recovering/Resolving]

NARRATIVE: CASE EVENT DATE: 20250624
